FAERS Safety Report 15928435 (Version 1)
Quarter: 2019Q1

REPORT INFORMATION
  Report Type: Spontaneous
  Country: US (occurrence: US)
  Receive Date: 20190206
  Receipt Date: 20190206
  Transmission Date: 20190417
  Serious: Yes (Hospitalization)
  Sender: FDA-Public Use
  Company Number: US-LANNETT COMPANY, INC.-US-2019LAN000131

PATIENT
  Age: 44 Year
  Sex: Female

DRUGS (1)
  1. HYDROMORPHONE HYDROCHLORIDE (8MG) [Suspect]
     Active Substance: HYDROMORPHONE HYDROCHLORIDE
     Indication: PAIN MANAGEMENT
     Dosage: 2 MG, Q4H AS NEEDED
     Route: 048

REACTIONS (7)
  - Hypophagia [Unknown]
  - Faecaloma [Recovered/Resolved]
  - Ketoacidosis [Recovered/Resolved]
  - Constipation [Recovered/Resolved]
  - Lipase increased [Unknown]
  - Intestinal obstruction [Recovered/Resolved]
  - Metabolic acidosis [Recovered/Resolved]
